FAERS Safety Report 5362249-3 (Version None)
Quarter: 2007Q2

REPORT INFORMATION
  Report Type: 
  Country: None (occurrence: None)
  Receive Date: 20070619
  Receipt Date: 20070608
  Transmission Date: 20071010
  Serious: Yes (Hospitalization)
  Sender: FDA-Public Use
  Company Number: FR-BAYER-200710366BFR

PATIENT
  Age: 86 Year
  Sex: Female

DRUGS (2)
  1. CIFLOX [Suspect]
     Indication: UNEVALUABLE EVENT
     Route: 048
     Dates: start: 20070301
  2. PYOSTACINE [Suspect]
     Indication: UNEVALUABLE EVENT
     Route: 048
     Dates: start: 20070301

REACTIONS (1)
  - VASCULAR PURPURA [None]
